FAERS Safety Report 5409800-2 (Version None)
Quarter: 2007Q3

REPORT INFORMATION
  Report Type: 
  Country: None (occurrence: None)
  Receive Date: 20070807
  Receipt Date: 20070315
  Transmission Date: 20080115
  Serious: Yes (Death, Hospitalization)
  Sender: FDA-Public Use
  Company Number: JPI-P-000868

PATIENT
  Age: 6 Decade
  Sex: Female

DRUGS (4)
  1. XYREM [Suspect]
     Indication: SLEEP DISORDER
     Dosage: (APPROXIMATELY 2 GM NIGHTLY), ORAL
     Route: 048
     Dates: start: 20060101
  2. KLONOPIN [Suspect]
     Indication: DRUG USE FOR UNKNOWN INDICATION
     Dosage: (APPROXIMATELY .5 MILLIGRAM)
     Dates: end: 20070217
  3. NORCO [Suspect]
     Indication: DRUG USE FOR UNKNOWN INDICATION
     Dates: end: 20070217
  4. OPIOIDS (OPIOIDS) [Suspect]
     Indication: DRUG USE FOR UNKNOWN INDICATION

REACTIONS (5)
  - ACCIDENTAL DEATH [None]
  - LOSS OF CONSCIOUSNESS [None]
  - MULTIPLE DRUG OVERDOSE [None]
  - SUICIDAL BEHAVIOUR [None]
  - TREATMENT NONCOMPLIANCE [None]
